FAERS Safety Report 11317828 (Version 1)
Quarter: 2015Q3

REPORT INFORMATION
  Report Type: Spontaneous
  Country: CN (occurrence: CN)
  Receive Date: 20150728
  Receipt Date: 20150728
  Transmission Date: 20151125
  Serious: Yes (Other)
  Sender: FDA-Public Use
  Company Number: CN-BAYER-2015-381258

PATIENT
  Age: 64 Year
  Sex: Female

DRUGS (12)
  1. CEREBROPROTEIN HYDROLYSATE [Concomitant]
     Active Substance: PROTEIN HYDROLYSATE
     Dosage: UNK
     Route: 041
  2. CLOPIDOGREL [Interacting]
     Active Substance: CLOPIDOGREL BISULFATE
     Dosage: 300 MG, QD
     Route: 048
     Dates: start: 20141003
  3. TROXERUTIN [Concomitant]
     Active Substance: TROXERUTIN
     Dosage: UNK
     Route: 041
  4. BAYASPIRIN [Suspect]
     Active Substance: ASPIRIN
     Dosage: 300 MG, QD
     Route: 048
     Dates: start: 20141003
  5. NIMODIPINE. [Concomitant]
     Active Substance: NIMODIPINE
     Dosage: 60 MG, TID
  6. BAYASPIRIN [Interacting]
     Active Substance: ASPIRIN
     Dosage: 100 MG, QD
     Route: 048
     Dates: start: 20141005
  7. VALSARTAN. [Concomitant]
     Active Substance: VALSARTAN
     Dosage: 1 DF, QD
  8. PIRACETAM [Concomitant]
     Active Substance: PIRACETAM
     Dosage: 20 G, BID
     Route: 041
  9. SODIUM CHLORIDE. [Concomitant]
     Active Substance: SODIUM CHLORIDE
     Dosage: 20 G, BID
     Route: 041
  10. BAYASPIRIN [Interacting]
     Active Substance: ASPIRIN
     Dosage: 100 MG, QD
     Route: 048
     Dates: start: 20141023
  11. CLOPIDOGREL [Interacting]
     Active Substance: CLOPIDOGREL BISULFATE
     Dosage: 75 MG, QD
     Route: 048
     Dates: start: 20141005
  12. AMLODIPINE [Concomitant]
     Active Substance: AMLODIPINE BESYLATE
     Dosage: 1 DF, QD

REACTIONS (4)
  - Gastric ulcer [None]
  - Duodenal ulcer [None]
  - Upper gastrointestinal haemorrhage [None]
  - Labelled drug-drug interaction medication error [None]

NARRATIVE: CASE EVENT DATE: 20141019
